FAERS Safety Report 22139180 (Version 1)
Quarter: 2023Q1

REPORT INFORMATION
  Report Type: Spontaneous
  Country: GB (occurrence: GB)
  Receive Date: 20230327
  Receipt Date: 20230327
  Transmission Date: 20230418
  Serious: Yes (Other)
  Sender: FDA-Public Use
  Company Number: GB-002147023-NVSC2023GB042917

PATIENT
  Age: 38 Year
  Sex: Female

DRUGS (7)
  1. ERENUMAB [Suspect]
     Active Substance: ERENUMAB
     Indication: Migraine
     Dosage: 140 MILLIGRAM, Q4WK
     Route: 058
     Dates: start: 20220909, end: 20221201
  2. ERENUMAB [Suspect]
     Active Substance: ERENUMAB
     Indication: Migraine without aura
  3. LEVOTHYROXINE [Concomitant]
     Active Substance: LEVOTHYROXINE
     Indication: Hypothyroidism
     Dosage: UNK
     Route: 065
  4. SERTRALINE [Concomitant]
     Active Substance: SERTRALINE HYDROCHLORIDE
     Indication: Depression
     Dosage: UNK
     Route: 065
  5. Triptan [Concomitant]
     Indication: Product used for unknown indication
     Dosage: 2 DOSAGE FORM, QW
     Route: 065
  6. Syndol [Concomitant]
     Indication: Product used for unknown indication
     Dosage: UNK
     Route: 065
  7. ACETAMINOPHEN [Concomitant]
     Active Substance: ACETAMINOPHEN
     Indication: Product used for unknown indication
     Dosage: UNK
     Route: 065

REACTIONS (1)
  - Chillblains [Recovering/Resolving]

NARRATIVE: CASE EVENT DATE: 20220909
